FAERS Safety Report 23815787 (Version 3)
Quarter: 2024Q2

REPORT INFORMATION
  Report Type: Spontaneous
  Country: JP (occurrence: JP)
  Receive Date: 20240503
  Receipt Date: 20240527
  Transmission Date: 20240716
  Serious: Yes (Death, Other)
  Sender: FDA-Public Use
  Company Number: JP-MSD-2404JPN003753JAA

PATIENT
  Age: 52 Year
  Sex: Female

DRUGS (7)
  1. KEYTRUDA [Suspect]
     Active Substance: PEMBROLIZUMAB
     Indication: Uterine cancer
     Dosage: 200 MILLIGRAM, Q3W
     Route: 041
     Dates: start: 20220715, end: 20240318
  2. LENVATINIB MESYLATE [Suspect]
     Active Substance: LENVATINIB MESYLATE
     Indication: Uterine cancer
     Dosage: 20 MILLIGRAM, QD
     Route: 048
     Dates: start: 20220715, end: 20240418
  3. LEVOTHYROXINE SODIUM [Concomitant]
     Active Substance: LEVOTHYROXINE SODIUM
     Dosage: 100 MICROGRAM, QD, AFTER BREAKFAST
     Route: 048
  4. CORTRIL [Concomitant]
     Active Substance: HYDROCORTISONE
     Dosage: 7.5 MILLIGRAM, TWICE (AFTER BREAKFAST AND DINNER)
     Route: 065
  5. FAMOTIDINE [Concomitant]
     Active Substance: FAMOTIDINE
     Dosage: 20 MILLIGRAM, BID (AFTER BREAKFAST AND DINNER)
     Route: 048
  6. HERBALS [Concomitant]
     Active Substance: HERBALS
     Dosage: 2.5 GRAM, TID (AFTER EACH MEAL)
     Route: 048
  7. POTASSIUM ASPARTATE [Concomitant]
     Active Substance: POTASSIUM ASPARTATE
     Dosage: 300 MILLIGRAM, TID
     Route: 048

REACTIONS (2)
  - Immune-mediated adrenal insufficiency [Fatal]
  - Cardio-respiratory arrest [Fatal]
